FAERS Safety Report 23678924 (Version 1)
Quarter: 2024Q1

REPORT INFORMATION
  Report Type: Report from Study
  Country: TH (occurrence: None)
  Receive Date: 20240327
  Receipt Date: 20240327
  Transmission Date: 20240409
  Serious: Yes (Other)
  Sender: FDA-Public Use
  Company Number: 2024A071066

PATIENT
  Age: 26605 Day
  Sex: Male

DRUGS (1)
  1. TAGRISSO [Suspect]
     Active Substance: OSIMERTINIB
     Indication: Non-small cell lung cancer metastatic
     Route: 048
     Dates: start: 20210701

REACTIONS (19)
  - Hepatic cyst [Unknown]
  - Hepatic perfusion disorder [Unknown]
  - Hyperplastic cholecystopathy [Unknown]
  - Cholelithiasis [Unknown]
  - Diverticulum intestinal [Unknown]
  - Renal mass [Unknown]
  - Bladder diverticulum [Unknown]
  - Prostatomegaly [Unknown]
  - Hydrocele [Unknown]
  - Spinal osteoarthritis [Unknown]
  - Spondylolisthesis [Unknown]
  - Lung opacity [Unknown]
  - Pulmonary fibrosis [Unknown]
  - Atelectasis [Unknown]
  - Mass [Unknown]
  - Central nervous system lesion [Unknown]
  - Metastases to central nervous system [Unknown]
  - Lymphadenopathy [Unknown]
  - Pulmonary mass [Unknown]

NARRATIVE: CASE EVENT DATE: 20240306
